FAERS Safety Report 9185792 (Version 1)
Quarter: 2013Q1

REPORT INFORMATION
  Report Type: Spontaneous
  Country: US (occurrence: US)
  Receive Date: 20130325
  Receipt Date: 20130325
  Transmission Date: 20140127
  Serious: Yes (Hospitalization)
  Sender: FDA-Public Use
  Company Number: US-009507513-1303USA009620

PATIENT
  Sex: 0

DRUGS (4)
  1. ZOCOR [Suspect]
     Route: 048
  2. ATORVASTATIN [Suspect]
     Route: 048
  3. NIACIN [Suspect]
     Route: 048
  4. FENOFIBRATE [Suspect]

REACTIONS (1)
  - Rhabdomyolysis [Unknown]
